FAERS Safety Report 11875474 (Version 1)
Quarter: 2015Q4

REPORT INFORMATION
  Report Type: Spontaneous
  Country: DE (occurrence: DE)
  Receive Date: 20151229
  Receipt Date: 20151229
  Transmission Date: 20160305
  Serious: Yes (Other)
  Sender: FDA-Public Use
  Company Number: CHPA2015DE014988

PATIENT
  Sex: Male

DRUGS (1)
  1. SCOPODERM TTS [Suspect]
     Active Substance: SCOPOLAMINE
     Indication: SALIVARY HYPERSECRETION
     Dosage: UNK
     Route: 062
     Dates: start: 2010

REACTIONS (3)
  - Noninfective sialoadenitis [Unknown]
  - Product use issue [Unknown]
  - Lymphadenopathy [Unknown]
